FAERS Safety Report 21672166 (Version 2)
Quarter: 2023Q2

REPORT INFORMATION
  Report Type: Spontaneous
  Country: AR (occurrence: AR)
  Receive Date: 20221202
  Receipt Date: 20230603
  Transmission Date: 20230721
  Serious: Yes (Other)
  Sender: FDA-Public Use
  Company Number: AR-Accord-289229

PATIENT
  Age: 13 Year
  Sex: Male

DRUGS (4)
  1. METHOTREXATE [Suspect]
     Active Substance: METHOTREXATE
     Indication: B-cell lymphoma
     Dosage: CUMULATIVE DOSE: 5 (CYCLICAL)?AT AN AGE-APPROPRIATE DOSE
     Route: 037
  2. LEUCOVORIN [Concomitant]
     Active Substance: LEUCOVORIN
     Indication: B-cell lymphoma
     Dosage: 3 DOSES, 15 MG/M2
  3. LEUCOVORIN [Concomitant]
     Active Substance: LEUCOVORIN
     Indication: B-cell lymphoma
     Dosage: 3 DOSES, 15 MG/M2
  4. METHOTREXATE [Suspect]
     Active Substance: METHOTREXATE
     Indication: B-cell lymphoma
     Dosage: OVER 4 HOURS
     Route: 042

REACTIONS (4)
  - Generalised tonic-clonic seizure [Recovered/Resolved]
  - Blindness [Recovered/Resolved]
  - Vasogenic cerebral oedema [Recovered/Resolved]
  - Inappropriate affect [Recovered/Resolved]
